FAERS Safety Report 8143315-6 (Version None)
Quarter: 2012Q1

REPORT INFORMATION
  Report Type: 
  Country: None (occurrence: None)
  Receive Date: 20120217
  Receipt Date: 20120215
  Transmission Date: 20120608
  Serious: Yes (Life-Threatening, Other)
  Sender: FDA-Public Use
  Company Number: JP-PFIZER INC-2012035054

PATIENT
  Age: 65 Year
  Sex: Male

DRUGS (1)
  1. SOLU-CORTEF [Suspect]
     Dosage: UNK

REACTIONS (1)
  - PLATELET COUNT DECREASED [None]
